FAERS Safety Report 10208935 (Version 3)
Quarter: 2014Q2

REPORT INFORMATION
  Report Type: Report from Study
  Country: ES (occurrence: ES)
  Receive Date: 20140530
  Receipt Date: 20140623
  Transmission Date: 20141212
  Serious: Yes (Death, Hospitalization, Other)
  Sender: FDA-Public Use
  Company Number: ES-EXELIXIS-XL18413003551

PATIENT
  Age: 68 Year
  Sex: Male
  Weight: 70 kg

DRUGS (3)
  1. XL184 [Suspect]
     Indication: PROSTATE CANCER
     Dosage: 60 MG, QD
     Route: 048
     Dates: start: 20130620, end: 2013
  2. XL184 [Suspect]
     Dosage: 40 MG, QD
     Route: 048
     Dates: start: 2013
  3. XL184 [Suspect]
     Indication: PROSTATE CANCER
     Dosage: 5 MG, BID
     Route: 048
     Dates: start: 20130620

REACTIONS (1)
  - Prostate cancer [Fatal]
